FAERS Safety Report 10592440 (Version 1)
Quarter: 2014Q4

REPORT INFORMATION
  Report Type: Spontaneous
  Country: DE (occurrence: None)
  Receive Date: 20141117
  Receipt Date: 20141117
  Transmission Date: 20150529
  Serious: Yes (Other)
  Sender: FDA-Public Use
  Company Number: 2014249521

PATIENT
  Age: 51 Year
  Sex: Female

DRUGS (2)
  1. FRAGMIN P FORTE [Suspect]
     Active Substance: DALTEPARIN SODIUM
     Indication: PROPHYLAXIS
     Dates: start: 20140723, end: 20140723
  2. FRAGMIN P FORTE [Suspect]
     Active Substance: DALTEPARIN SODIUM
     Indication: LOCALISED INFECTION
     Dates: start: 20140723, end: 20140723

REACTIONS (5)
  - Arthralgia [None]
  - Platelet count decreased [None]
  - Blood pressure fluctuation [None]
  - Blood pressure increased [None]
  - Polyneuropathy [None]

NARRATIVE: CASE EVENT DATE: 201408
